FAERS Safety Report 8227649-2 (Version None)
Quarter: 2012Q1

REPORT INFORMATION
  Report Type: 
  Country: None (occurrence: None)
  Receive Date: 20120322
  Receipt Date: 20120309
  Transmission Date: 20120608
  Serious: Yes (Hospitalization)
  Sender: FDA-Public Use
  Company Number: FR-SANOFI-AVENTIS-2011SA067448

PATIENT
  Age: 65 Year
  Sex: Female

DRUGS (9)
  1. RIFADIN [Suspect]
     Dates: start: 20110617
  2. IMOVANE [Suspect]
     Indication: INSOMNIA
     Dosage: DOSE:1 UNIT(S)
     Route: 048
     Dates: start: 20110601, end: 20110718
  3. LEVOTHYROXINE SODIUM [Concomitant]
     Dosage: DOSE:100 UNIT(S)
  4. ALPRAZOLAM [Suspect]
     Indication: ANXIETY
     Route: 048
     Dates: start: 20110601, end: 20110718
  5. TRIMEPRAZINE TARTRATE [Suspect]
     Indication: ANXIETY
     Route: 048
     Dates: start: 20110601, end: 20110718
  6. POLYETHYLENE GLYCOL [Concomitant]
     Dosage: DOSE:400 UNIT(S)
  7. LOVENOX [Concomitant]
     Dosage: DOSE:0.4 UNIT(S)
  8. BETNEVAL [Concomitant]
     Route: 065
  9. DOXYCYCLINE [Suspect]
     Dates: start: 20110617, end: 20110817

REACTIONS (6)
  - FRONTOTEMPORAL DEMENTIA [None]
  - LOGORRHOEA [None]
  - ECHOLALIA [None]
  - DISORIENTATION [None]
  - TACHYPHRENIA [None]
  - DISINHIBITION [None]
